FAERS Safety Report 10430229 (Version 1)
Quarter: 2014Q3

REPORT INFORMATION
  Report Type: Spontaneous
  Country: US (occurrence: None)
  Receive Date: 20140808
  Receipt Date: 20140808
  Transmission Date: 20150326
  Serious: No
  Sender: FDA-Public Use
  Company Number: US-015595

PATIENT
  Sex: Female

DRUGS (1)
  1. PREPOPIK [Suspect]
     Active Substance: ANHYDROUS CITRIC ACID\MAGNESIUM OXIDE\SODIUM PICOSULFATE
     Indication: BOWEL PREPARATION
     Dosage: FIRST PACKET: 4:00 PM; SECOND PACKET: 10:00 PM ORAL
     Route: 048
     Dates: start: 20140428, end: 20140428

REACTIONS (3)
  - Gastrointestinal sounds abnormal [None]
  - Flatulence [None]
  - Abdominal discomfort [None]

NARRATIVE: CASE EVENT DATE: 20140501
